FAERS Safety Report 8826268 (Version 2)
Quarter: 2012Q4

REPORT INFORMATION
  Report Type: 
  Country: AU (occurrence: AU)
  Receive Date: 20121005
  Receipt Date: 20121123
  Transmission Date: 20130627
  Serious: Yes (Death)
  Sender: FDA-Public Use
  Company Number: AU-B.I. PHARMACEUTICALS,INC./RIDGEFIELD-2012-AU-01696AU

PATIENT
  Age: 88 Year
  Sex: Male

DRUGS (1)
  1. PRADAXA [Suspect]
     Indication: ATRIAL FIBRILLATION
     Dosage: 110 mg
     Dates: start: 20110803, end: 20110921

REACTIONS (4)
  - Cerebrovascular accident [Fatal]
  - Fatigue [Recovered/Resolved]
  - Tinnitus [Recovered/Resolved]
  - Constipation [Recovered/Resolved]
